FAERS Safety Report 10420120 (Version 1)
Quarter: 2014Q3

REPORT INFORMATION
  Report Type: Spontaneous
  Country: VE (occurrence: VE)
  Receive Date: 20140829
  Receipt Date: 20140829
  Transmission Date: 20150326
  Serious: Yes (Other)
  Sender: FDA-Public Use
  Company Number: VE-BIOMARINAP-VE-2014-103978

PATIENT
  Age: 3 Year
  Sex: Female
  Weight: 12.9 kg

DRUGS (1)
  1. ALDURAZYME [Suspect]
     Active Substance: LARONIDASE
     Indication: MUCOPOLYSACCHARIDOSIS I
     Dosage: 0.58 MG/ML, QW
     Route: 042
     Dates: start: 20140721

REACTIONS (4)
  - Dyspnoea [Unknown]
  - Feeling cold [Unknown]
  - Cyanosis [Unknown]
  - Pallor [Unknown]

NARRATIVE: CASE EVENT DATE: 20140811
